FAERS Safety Report 9788709 (Version 4)
Quarter: 2014Q2

REPORT INFORMATION
  Report Type: Spontaneous
  Country: US (occurrence: US)
  Receive Date: 20131230
  Receipt Date: 20140522
  Transmission Date: 20141212
  Serious: Yes (Other)
  Sender: FDA-Public Use
  Company Number: US-UCBSA-059880

PATIENT
  Sex: Female
  Weight: 81.6 kg

DRUGS (9)
  1. KEPPRA [Suspect]
     Indication: CONVULSION
     Dosage: DRUG STRENGTH : 100 MG/ML., 25 ML/DAY(LOT#61753; EXPIRATION DATE: 31/JAN/2014)
     Route: 048
  2. KEPPRA [Suspect]
  3. DILANTIN [Concomitant]
     Indication: CONVULSION
     Dosage: 100MG, TWO IN AM AND TWO IN PM
     Route: 048
  4. DIAZEPAM [Concomitant]
     Indication: CONVULSION
     Dosage: 10MG FOUR TIMES A DAY AND CAN TAKE 1/2 FOR BREAKTHROUGH SEIZURES
     Route: 048
  5. SYNTHROID [Concomitant]
     Indication: THYROID CANCER
     Dosage: DOSED TWICE WITH RADIATION, IN AM
     Route: 048
     Dates: start: 19950602
  6. METOPROLOL TARTRATE [Concomitant]
     Indication: ATRIAL FIBRILLATION
     Route: 048
  7. PROZAC [Concomitant]
     Indication: DEPRESSION
     Dosage: EVERY NIGHT
     Route: 048
  8. ALBUTEROL [Concomitant]
     Indication: ASTHMA
     Dosage: TWO PUFFS FOUR TIME A DAY, INHALATION
  9. ALBUTEROL [Concomitant]
     Indication: CHRONIC OBSTRUCTIVE PULMONARY DISEASE
     Dosage: TWO PUFFS FOUR TIME A DAY, INHALATION

REACTIONS (8)
  - Generalised tonic-clonic seizure [Unknown]
  - Fall [Unknown]
  - Petit mal epilepsy [Not Recovered/Not Resolved]
  - Insomnia [Not Recovered/Not Resolved]
  - Laceration [Unknown]
  - Drug ineffective [Not Recovered/Not Resolved]
  - Inappropriate schedule of drug administration [Not Recovered/Not Resolved]
  - Vomiting [Unknown]
